FAERS Safety Report 5122651-1 (Version None)
Quarter: 2006Q4

REPORT INFORMATION
  Report Type: 
  Country: None (occurrence: None)
  Receive Date: 20061005
  Receipt Date: 20061005
  Transmission Date: 20070319
  Serious: Yes (Other)
  Sender: FDA-Public Use
  Company Number: None

PATIENT
  Sex: Female
  Weight: 90.7194 kg

DRUGS (14)
  1. HUMIRA [Suspect]
     Indication: RHEUMATOID ARTHRITIS
     Dosage: 40MG EVERY 2 WEEKS SQ
     Route: 058
     Dates: start: 20040611, end: 20060930
  2. METHOTREXATE [Concomitant]
  3. PREDNISONE TAB [Concomitant]
  4. FOLIC ACID [Concomitant]
  5. HYDROCHLOROTHIAZIDE [Concomitant]
  6. ZESTRIL [Concomitant]
  7. ESTROVAN [Concomitant]
  8. XANAX [Concomitant]
  9. PROVENTIL [Concomitant]
  10. RHINOCORT [Concomitant]
  11. MULTI-VITAMIN [Concomitant]
  12. VITAMIN C AND E SUPPLEMENTS [Concomitant]
  13. CALCIUM PLUS D [Concomitant]
  14. PARAFON FORTE [Concomitant]

REACTIONS (5)
  - CONTUSION [None]
  - FEELING JITTERY [None]
  - PRURITUS [None]
  - RASH [None]
  - SKIN REACTION [None]
